FAERS Safety Report 25361351 (Version 6)
Quarter: 2025Q3

REPORT INFORMATION
  Report Type: Report from Study
  Country: US (occurrence: US)
  Receive Date: 20250527
  Receipt Date: 20250924
  Transmission Date: 20251021
  Serious: Yes (Hospitalization, Other)
  Sender: SUNOVION
  Company Number: US-SUMITOMO PHARMA SWITZERLAND GMBH-2025SPA006128

PATIENT
  Age: 81 Year
  Sex: Male

DRUGS (2)
  1. ORGOVYX [Suspect]
     Active Substance: RELUGOLIX
     Indication: Prostate cancer
     Dosage: 360 MG, SINGLE
     Route: 048
     Dates: start: 20250402, end: 20250402
  2. ORGOVYX [Suspect]
     Active Substance: RELUGOLIX
     Dosage: 120 MG, QD
     Route: 048
     Dates: start: 20250403

REACTIONS (9)
  - Intestinal obstruction [Unknown]
  - Ear operation [Unknown]
  - Bladder catheterisation [Unknown]
  - Infection prophylaxis [Unknown]
  - Feeling abnormal [Recovered/Resolved]
  - Urinary tract infection [Unknown]
  - Asthenia [Unknown]
  - Back pain [Unknown]
  - Fatigue [Unknown]
